FAERS Safety Report 9391483 (Version 1)
Quarter: 2013Q3

REPORT INFORMATION
  Report Type: Spontaneous
  Country: GB (occurrence: GB)
  Receive Date: 20130709
  Receipt Date: 20130709
  Transmission Date: 20140515
  Serious: Yes (Other)
  Sender: FDA-Public Use
  Company Number: GB-WATSON-2013-11865

PATIENT
  Sex: 0

DRUGS (1)
  1. NAPROXEN SODIUM (UNKNOWN) [Suspect]
     Indication: ARTHRITIS
     Dosage: 500 MG, UNKNOWN
     Route: 065

REACTIONS (1)
  - Confusional state [Unknown]
